FAERS Safety Report 12552361 (Version 2)
Quarter: 2017Q4

REPORT INFORMATION
  Report Type: Spontaneous
  Country: US (occurrence: US)
  Receive Date: 20160713
  Receipt Date: 20171012
  Transmission Date: 20180320
  Serious: Yes (Hospitalization)
  Sender: FDA-Public Use
  Company Number: US-SUN PHARMACEUTICAL INDUSTRIES LTD-2016US-120072

PATIENT
  Age: 35 Year
  Sex: Female

DRUGS (1)
  1. BUPROPION. [Suspect]
     Active Substance: BUPROPION
     Indication: PRODUCT USED FOR UNKNOWN INDICATION
     Dosage: 90-100 EXTENDED RELEASE TABLETS
     Route: 048

REACTIONS (8)
  - Mental status changes [Unknown]
  - Generalised tonic-clonic seizure [Unknown]
  - Ventricular tachyarrhythmia [Unknown]
  - Overdose [Unknown]
  - Status epilepticus [Unknown]
  - Cardiac arrest [Unknown]
  - Hypotension [Unknown]
  - Poisoning deliberate [Unknown]
